FAERS Safety Report 7537407-X (Version None)
Quarter: 2011Q2

REPORT INFORMATION
  Report Type: 
  Country: None (occurrence: None)
  Receive Date: 20110608
  Receipt Date: 20110608
  Transmission Date: 20111010
  Serious: Yes (Other)
  Sender: FDA-Public Use
  Company Number: None

PATIENT
  Age: 71 Year
  Sex: Female

DRUGS (1)
  1. PROCTOFOAM HC [Suspect]
     Indication: HAEMORRHOIDS
     Dosage: APPLY PER RECTUM TWICE A DAY

REACTIONS (2)
  - PRODUCT ODOUR ABNORMAL [None]
  - APPLICATION SITE RASH [None]
